FAERS Safety Report 6192325-7 (Version None)
Quarter: 2009Q2

REPORT INFORMATION
  Report Type: 
  Country: None (occurrence: None)
  Receive Date: 20090515
  Receipt Date: 20090511
  Transmission Date: 20091009
  Serious: Yes (Hospitalization, Other)
  Sender: FDA-Public Use
  Company Number: US-ALLERGAN-0906493US

PATIENT
  Age: 51 Year
  Sex: Female

DRUGS (2)
  1. BOTOX [Suspect]
     Indication: TORTICOLLIS
     Dosage: 300 UNITS, SINGLE
     Route: 030
     Dates: start: 20090318, end: 20090318
  2. BOTOX [Suspect]
     Indication: MIGRAINE

REACTIONS (3)
  - ASTHENIA [None]
  - DYSPNOEA [None]
  - PNEUMOTHORAX [None]
